FAERS Safety Report 20323963 (Version 2)
Quarter: 2022Q1

REPORT INFORMATION
  Report Type: Report from Study
  Country: JP (occurrence: JP)
  Receive Date: 20220111
  Receipt Date: 20220207
  Transmission Date: 20220423
  Serious: Yes (Death, Hospitalization, Other)
  Sender: FDA-Public Use
  Company Number: JP-BRISTOL-MYERS SQUIBB COMPANY-BMS-2021-141773

PATIENT
  Age: 76 Year
  Sex: Male
  Weight: 60.6 kg

DRUGS (2)
  1. IPILIMUMAB [Suspect]
     Active Substance: IPILIMUMAB
     Indication: Non-small cell lung cancer recurrent
     Dosage: 60 MILLIGRAM
     Route: 041
     Dates: start: 20210210, end: 20210210
  2. NIVOLUMAB [Suspect]
     Active Substance: NIVOLUMAB
     Indication: Non-small cell lung cancer recurrent
     Dosage: 360 MILLIGRAM
     Route: 041
     Dates: start: 20210210, end: 20210210

REACTIONS (2)
  - Malignant neoplasm progression [Fatal]
  - Hepatic function abnormal [Recovered/Resolved]

NARRATIVE: CASE EVENT DATE: 20210308
